FAERS Safety Report 7248295-3 (Version None)
Quarter: 2011Q1

REPORT INFORMATION
  Report Type: 
  Country: None (occurrence: None)
  Receive Date: 20110127
  Receipt Date: 20110117
  Transmission Date: 20110831
  Serious: Yes (Hospitalization)
  Sender: FDA-Public Use
  Company Number: JP-ABBOTT-10P-087-0693766-01

PATIENT
  Sex: Male
  Weight: 53 kg

DRUGS (21)
  1. PENTASA [Concomitant]
     Indication: COLITIS ULCERATIVE
     Route: 048
     Dates: start: 20090415
  2. LOXONIN [Concomitant]
     Indication: ANALGESIC THERAPY
     Route: 048
     Dates: start: 20101101
  3. PREDONINE [Concomitant]
     Route: 048
     Dates: start: 20090902, end: 20091029
  4. PREDONINE [Concomitant]
     Route: 048
     Dates: start: 20091030
  5. LAC B [Concomitant]
     Indication: COLITIS ULCERATIVE
     Dates: start: 20080813
  6. FERRICON [Concomitant]
     Route: 042
     Dates: start: 20091125, end: 20091125
  7. FERRICON [Concomitant]
     Route: 042
     Dates: start: 20100106, end: 20100106
  8. IMURAN [Concomitant]
     Indication: COLITIS ULCERATIVE
     Route: 048
     Dates: start: 20090401
  9. HUMIRA [Suspect]
     Route: 058
     Dates: start: 20100217, end: 20100303
  10. PREDONINE [Concomitant]
     Indication: COLITIS ULCERATIVE
     Route: 048
     Dates: start: 20090805, end: 20090901
  11. SELBEX [Concomitant]
     Indication: GASTRIC DISORDER
     Route: 048
     Dates: start: 20061113
  12. ACTONEL [Concomitant]
     Indication: OSTEOPOROSIS PROPHYLAXIS
     Route: 048
     Dates: start: 20080109
  13. FERROUS CITRATE [Concomitant]
     Indication: IRON DEFICIENCY ANAEMIA
     Route: 048
     Dates: start: 20091117
  14. HUMIRA [Suspect]
     Dosage: RESCUE
     Route: 058
     Dates: start: 20100120, end: 20100203
  15. FERRICON [Concomitant]
     Route: 042
     Dates: start: 20091209, end: 20091209
  16. POSTERISAN FORTE [Concomitant]
     Indication: HAEMORRHOIDS
     Route: 061
     Dates: start: 20091201
  17. HUMIRA [Suspect]
     Indication: COLITIS ULCERATIVE
     Route: 058
     Dates: start: 20091113, end: 20101101
  18. FERRICON [Concomitant]
     Indication: ANAEMIA
     Route: 042
     Dates: start: 20091117, end: 20091117
  19. FERRICON [Concomitant]
     Route: 042
     Dates: start: 20091225, end: 20091225
  20. PARIET [Concomitant]
     Indication: GASTRIC DISORDER
     Route: 048
     Dates: start: 20081029
  21. HUMIRA [Suspect]
     Route: 058
     Dates: start: 20100317, end: 20101101

REACTIONS (1)
  - ENTEROCOLITIS [None]
